FAERS Safety Report 4279841-X (Version None)
Quarter: 2004Q1

REPORT INFORMATION
  Report Type: 
  Country: None (occurrence: None)
  Receive Date: 20040122
  Receipt Date: 20040117
  Transmission Date: 20041129
  Serious: Yes (Hospitalization)
  Sender: FDA-Public Use
  Company Number: 200410196GDS

PATIENT
  Age: 31 Year
  Sex: Female

DRUGS (1)
  1. ADALAT CC [Suspect]
     Indication: HYPERTENSION
     Dosage: 20MG TOTAL DAILY ORAL
     Route: 048
     Dates: start: 20040110

REACTIONS (7)
  - ABDOMINAL PAIN UPPER [None]
  - CHEST DISCOMFORT [None]
  - DYSPEPSIA [None]
  - ERYTHEMA [None]
  - PARAESTHESIA CIRCUMORAL [None]
  - TACHYCARDIA [None]
  - TREMOR [None]
